FAERS Safety Report 10806159 (Version 1)
Quarter: 2015Q1

REPORT INFORMATION
  Report Type: Report from Study
  Country: US (occurrence: US)
  Receive Date: 20150217
  Receipt Date: 20150217
  Transmission Date: 20150721
  Serious: No
  Sender: FDA-Public Use
  Company Number: US-ABBVIE-14K-163-1251594-00

PATIENT
  Sex: Female

DRUGS (2)
  1. HUMIRA [Suspect]
     Active Substance: ADALIMUMAB
     Indication: PSORIASIS
     Route: 065
     Dates: start: 20140411
  2. UNKNOWN PILLS [Suspect]
     Active Substance: UNSPECIFIED INGREDIENT
     Indication: FUNGAL SKIN INFECTION
     Route: 065
     Dates: start: 2014

REACTIONS (6)
  - Peripheral swelling [Unknown]
  - Urticaria [Unknown]
  - Rash macular [Not Recovered/Not Resolved]
  - Rash erythematous [Recovering/Resolving]
  - Nodule [Not Recovered/Not Resolved]
  - Erythema [Unknown]

NARRATIVE: CASE EVENT DATE: 2014
